FAERS Safety Report 8791866 (Version 1)
Quarter: 2012Q4

REPORT INFORMATION
  Report Type: 
  Country: JP (occurrence: JP)
  Receive Date: 20120918
  Receipt Date: 20120918
  Transmission Date: 20130627
  Serious: Yes (Hospitalization, Other)
  Sender: FDA-Public Use
  Company Number: PHHY2012JP064171

PATIENT
  Age: 52 Year
  Sex: Male
  Weight: 55 kg

DRUGS (9)
  1. NEORAL [Suspect]
     Indication: PSORIASIS
     Dosage: 5 DF, daily
     Route: 048
  2. NEORAL [Suspect]
     Dates: start: 20120608
  3. NEORAL [Suspect]
     Dosage: 3 DF, QD
  4. NEORAL [Suspect]
     Dosage: 10 DF, daily in two divided doses
     Dates: start: 20120731
  5. CO-DIOVAN [Concomitant]
     Dosage: 1 DF, UNK
     Route: 048
     Dates: start: 20120510
  6. MUCODYNE [Concomitant]
     Route: 048
     Dates: start: 20120510
  7. EMPYNASE [Concomitant]
     Route: 048
     Dates: start: 20120510
  8. THEOLONG [Concomitant]
     Route: 048
     Dates: start: 20120510
  9. HOKUNALIN [Concomitant]
     Route: 062
     Dates: start: 20120510

REACTIONS (14)
  - Cardiac failure [Unknown]
  - Respiratory failure [Unknown]
  - Pneumonia mycoplasmal [Unknown]
  - Hypoxia [Unknown]
  - Dyspnoea [Unknown]
  - Renal failure acute [Unknown]
  - Renal impairment [Unknown]
  - Phlebitis [Unknown]
  - Tenderness [Unknown]
  - Erythema [Unknown]
  - Feeling hot [Unknown]
  - Induration [Unknown]
  - Hyperglycaemia [Unknown]
  - Hypertension [Unknown]
